FAERS Safety Report 24557571 (Version 1)
Quarter: 2024Q4

REPORT INFORMATION
  Report Type: Spontaneous
  Country: PL (occurrence: PL)
  Receive Date: 20241028
  Receipt Date: 20241028
  Transmission Date: 20250115
  Serious: Yes (Hospitalization)
  Sender: AUROBINDO
  Company Number: PL-AstraZeneca-CH-00711228A

PATIENT
  Age: 73 Year
  Sex: Female

DRUGS (1)
  1. HYDROCHLOROTHIAZIDE [Suspect]
     Active Substance: HYDROCHLOROTHIAZIDE
     Indication: Hypertension
     Dosage: 25 MILLIGRAM, ONCE A DAY (25 MILLIGRAM, QD)
     Route: 065

REACTIONS (10)
  - Hyponatraemia [Unknown]
  - Asthenia [Unknown]
  - Blood pressure increased [Unknown]
  - Dizziness [Unknown]
  - Electrolyte depletion [Unknown]
  - Heart rate irregular [Unknown]
  - Hair disorder [Unknown]
  - Inflammatory marker increased [Unknown]
  - Rales [Unknown]
  - Urinary tract infection [Unknown]
